FAERS Safety Report 23843745 (Version 1)
Quarter: 2024Q2

REPORT INFORMATION
  Report Type: Spontaneous
  Country: US (occurrence: None)
  Receive Date: 20240510
  Receipt Date: 20240510
  Transmission Date: 20240716
  Serious: Yes (Hospitalization, Other)
  Sender: FDA-Public Use
  Company Number: None

PATIENT
  Age: 56 Year
  Sex: Female
  Weight: 54 kg

DRUGS (13)
  1. CRESTOR [Suspect]
     Active Substance: ROSUVASTATIN CALCIUM
     Indication: Blood cholesterol increased
     Dosage: 1 TABLET AT BEDTIME ORAL
     Route: 048
     Dates: start: 20231012, end: 20240321
  2. VAGINAL CREAM ESTRADIOL [Concomitant]
  3. PREDNISONE [Concomitant]
     Active Substance: PREDNISONE
  4. GABAPENTIN [Concomitant]
     Active Substance: GABAPENTIN
  5. ADVIL [Concomitant]
     Active Substance: IBUPROFEN
  6. TYLENOL [Concomitant]
     Active Substance: ACETAMINOPHEN
  7. MELOXICAM [Concomitant]
     Active Substance: MELOXICAM
  8. FLUCONAZOLE [Concomitant]
     Active Substance: FLUCONAZOLE
  9. CLOTRIMAZOLE [Concomitant]
     Active Substance: CLOTRIMAZOLE
  10. VITAMINS [Concomitant]
     Active Substance: VITAMINS
  11. VITAMIN B [Concomitant]
     Active Substance: VITAMIN B
  12. OMEGA SUPPLEMENT [Concomitant]
  13. FIBER PILL [Concomitant]

REACTIONS (15)
  - Arthralgia [None]
  - Arthralgia [None]
  - Pain [None]
  - Gait disturbance [None]
  - Musculoskeletal disorder [None]
  - Insomnia [None]
  - Therapy cessation [None]
  - Loss of personal independence in daily activities [None]
  - Exercise tolerance decreased [None]
  - High density lipoprotein decreased [None]
  - Anal rash [None]
  - Hypoaesthesia [None]
  - Fear of disease [None]
  - Fear of death [None]
  - Product complaint [None]

NARRATIVE: CASE EVENT DATE: 20240321
